FAERS Safety Report 5466713-8 (Version None)
Quarter: 2007Q3

REPORT INFORMATION
  Report Type: 
  Country: None (occurrence: None)
  Receive Date: 20070924
  Receipt Date: 20070924
  Transmission Date: 20080115
  Serious: Yes (Hospitalization)
  Sender: FDA-Public Use
  Company Number: None

PATIENT
  Sex: Female
  Weight: 110.7 kg

DRUGS (1)
  1. TEMOZOLOMIDE [Suspect]
     Dosage: 7525 MG

REACTIONS (1)
  - ABDOMINAL PAIN [None]
